FAERS Safety Report 25310320 (Version 1)
Quarter: 2025Q2

REPORT INFORMATION
  Report Type: Spontaneous
  Country: US (occurrence: US)
  Receive Date: 20250514
  Receipt Date: 20250514
  Transmission Date: 20250717
  Serious: Yes (Death, Life-Threatening, Other)
  Sender: UNITED THERAPEUTICS
  Company Number: US-UNITED THERAPEUTICS-UNT-2025-015572

PATIENT
  Age: 3 Year

DRUGS (7)
  1. UNITUXIN [Suspect]
     Active Substance: DINUTUXIMAB
     Indication: Neuroblastoma
     Route: 041
  2. UNITUXIN [Suspect]
     Active Substance: DINUTUXIMAB
  3. ALDESLEUKIN [Suspect]
     Active Substance: ALDESLEUKIN
     Indication: Neuroblastoma
  4. GRANULOCYTE-MACROPHAGE COLONY-STIMULATING FACTOR [Suspect]
     Active Substance: GRANULOCYTE-MACROPHAGE COLONY-STIMULATING FACTOR
     Indication: Neuroblastoma
  5. TRETINOIN [Concomitant]
     Active Substance: TRETINOIN
     Indication: Neuroblastoma
  6. PIRFENIDONE [Concomitant]
     Active Substance: PIRFENIDONE
     Indication: Pleuroparenchymal fibroelastosis
  7. AZITHROMYCIN [Concomitant]
     Active Substance: AZITHROMYCIN
     Indication: Pleuroparenchymal fibroelastosis

REACTIONS (5)
  - Death [Fatal]
  - Pleuroparenchymal fibroelastosis [Not Recovered/Not Resolved]
  - Respiratory distress [Unknown]
  - Pneumothorax [Unknown]
  - Bronchiectasis [Unknown]
